FAERS Safety Report 9548525 (Version 1)
Quarter: 2013Q3

REPORT INFORMATION
  Report Type: Spontaneous
  Country: US (occurrence: US)
  Receive Date: 20130924
  Receipt Date: 20130924
  Transmission Date: 20140515
  Serious: No
  Sender: FDA-Public Use
  Company Number: US-PFIZER INC-2013271519

PATIENT
  Sex: Female

DRUGS (2)
  1. GEODON [Suspect]
     Dosage: 20 MG AT BEDTIME
  2. GEODON [Suspect]
     Dosage: 100 MG AT BEDTIME

REACTIONS (2)
  - Insomnia [Recovered/Resolved]
  - Intentional drug misuse [Unknown]
